FAERS Safety Report 9138758 (Version 1)
Quarter: 2013Q1

REPORT INFORMATION
  Report Type: Spontaneous
  Country: US (occurrence: US)
  Receive Date: 20130305
  Receipt Date: 20130305
  Transmission Date: 20140127
  Serious: Yes (Other)
  Sender: FDA-Public Use
  Company Number: US-BAYER-2013-025731

PATIENT
  Sex: Male

DRUGS (1)
  1. STIVARGA [Suspect]
     Dosage: FULL DOSE
     Route: 048
     Dates: end: 20130222

REACTIONS (3)
  - Herpes virus infection [None]
  - Palmar-plantar erythrodysaesthesia syndrome [None]
  - Skin disorder [None]
